FAERS Safety Report 17975253 (Version 1)
Quarter: 2020Q3

REPORT INFORMATION
  Report Type: Spontaneous
  Country: US (occurrence: US)
  Receive Date: 20200702
  Receipt Date: 20200702
  Transmission Date: 20201103
  Serious: Yes (Other)
  Sender: FDA-Public Use
  Company Number: US-GLAXOSMITHKLINE-US2020AMR112924

PATIENT
  Age: 49 Year
  Sex: Female
  Weight: 42.64 kg

DRUGS (4)
  1. CYTOMEL [Suspect]
     Active Substance: LIOTHYRONINE SODIUM
     Indication: PRODUCT USED FOR UNKNOWN INDICATION
     Dosage: 5 MG HALF A TABLET BY MOUTH ONCE A DAY BEFORE MEAL
     Route: 065
     Dates: start: 20200616
  2. VALACYCLOVIR [Suspect]
     Active Substance: VALACYCLOVIR HYDROCHLORIDE
     Indication: HERPES SIMPLEX ENCEPHALITIS
     Dosage: 500 MG, BID
     Route: 065
     Dates: start: 2020
  3. SYNTHROID [Concomitant]
     Active Substance: LEVOTHYROXINE SODIUM
     Indication: PRODUCT USED FOR UNKNOWN INDICATION
     Dosage: UNK
     Route: 065
  4. LIOTHYRONINE [Suspect]
     Active Substance: LIOTHYRONINE
     Indication: HYPOTHYROIDISM
     Dosage: 5 MG HALF A TABLET BY MOUTH ONCE A DAY
     Route: 065

REACTIONS (7)
  - Insomnia [Unknown]
  - Scoliosis [Unknown]
  - Neoplasm malignant [Unknown]
  - Osteonecrosis [Unknown]
  - Weight decreased [Unknown]
  - Shoulder arthroplasty [Unknown]
  - Premature menopause [Unknown]

NARRATIVE: CASE EVENT DATE: 202001
